FAERS Safety Report 6552655-3 (Version None)
Quarter: 2010Q1

REPORT INFORMATION
  Report Type: 
  Country: None (occurrence: None)
  Receive Date: 20100126
  Receipt Date: 20100121
  Transmission Date: 20100710
  Serious: Yes (Other)
  Sender: FDA-Public Use
  Company Number: A0841328A

PATIENT
  Sex: Female

DRUGS (2)
  1. TYKERB [Suspect]
     Route: 065
  2. INSULIN [Concomitant]

REACTIONS (2)
  - DIARRHOEA [None]
  - HYPERGLYCAEMIA [None]
